FAERS Safety Report 6395538-4 (Version None)
Quarter: 2009Q4

REPORT INFORMATION
  Report Type: 
  Country: None (occurrence: None)
  Receive Date: 20091009
  Receipt Date: 20090929
  Transmission Date: 20100525
  Serious: Yes (Life-Threatening, Hospitalization, Disabling, Other)
  Sender: FDA-Public Use
  Company Number: BR-BAYER-200814377LA

PATIENT
  Age: 27 Year
  Sex: Female

DRUGS (6)
  1. BETAFERON [Suspect]
     Indication: MULTIPLE SCLEROSIS
     Route: 058
  2. BETAFERON [Suspect]
     Dosage: UNIT DOSE: 8 MIU
     Route: 058
     Dates: start: 20080501
  3. BETAFERON [Suspect]
     Dosage: UNIT DOSE: 8 MIU
     Route: 058
     Dates: start: 20060101, end: 20080520
  4. FERROUS SULFATE TAB [Concomitant]
     Indication: ANAEMIA
     Route: 048
     Dates: start: 20070101
  5. TEGRETOL [Concomitant]
     Indication: MUSCLE SPASMS
     Route: 048
     Dates: start: 20090501, end: 20090801
  6. HIDANTAL [Concomitant]
     Indication: CONVULSION
     Route: 048
     Dates: start: 20090701, end: 20090801

REACTIONS (15)
  - DECREASED APPETITE [None]
  - FALL [None]
  - HEMIPLEGIA [None]
  - INJECTION SITE PAIN [None]
  - INJECTION SITE RASH [None]
  - MOVEMENT DISORDER [None]
  - MULTIPLE SCLEROSIS [None]
  - MUSCULAR WEAKNESS [None]
  - NERVOUSNESS [None]
  - PAIN IN EXTREMITY [None]
  - QUADRIPLEGIA [None]
  - RETCHING [None]
  - SPEECH DISORDER [None]
  - SUICIDE ATTEMPT [None]
  - WEIGHT DECREASED [None]
